FAERS Safety Report 5330196-9 (Version None)
Quarter: 2007Q2

REPORT INFORMATION
  Report Type: 
  Country: None (occurrence: None)
  Receive Date: 20070515
  Receipt Date: 20070320
  Transmission Date: 20071010
  Serious: No
  Sender: FDA-Public Use
  Company Number: 26488

PATIENT
  Age: 58 Year
  Sex: Female

DRUGS (2)
  1. NIASPAN [Suspect]
     Dosage: 500 MG PO
     Route: 048
  2. NYSTATIN [Suspect]
     Dosage: 500000 PO
     Route: 048

REACTIONS (1)
  - INTERCEPTED MEDICATION ERROR [None]
